FAERS Safety Report 7844956-3 (Version None)
Quarter: 2011Q4

REPORT INFORMATION
  Report Type: 
  Country: None (occurrence: None)
  Receive Date: 20111025
  Receipt Date: 20111019
  Transmission Date: 20120403
  Serious: Yes (Hospitalization)
  Sender: FDA-Public Use
  Company Number: US-CEPHALON-2011004642

PATIENT
  Sex: Male
  Weight: 109 kg

DRUGS (5)
  1. TRISENOX [Suspect]
     Indication: ACUTE PROMYELOCYTIC LEUKAEMIA
     Route: 042
  2. FLOMAX [Concomitant]
  3. ATRACURIUM BESYLATE [Concomitant]
  4. DIOVAN [Concomitant]
  5. NORVASC [Concomitant]

REACTIONS (3)
  - ANXIETY [None]
  - ACINETOBACTER BACTERAEMIA [None]
  - LOSS OF CONSCIOUSNESS [None]
